FAERS Safety Report 7194404-4 (Version None)
Quarter: 2010Q4

REPORT INFORMATION
  Report Type: 
  Country: None (occurrence: None)
  Receive Date: 20101124
  Receipt Date: 20100831
  Transmission Date: 20110411
  Serious: Yes (Life-Threatening, Other)
  Sender: FDA-Public Use
  Company Number: 012699

PATIENT
  Sex: Female

DRUGS (3)
  1. LACOSAMIDE [Suspect]
     Indication: CONVULSION
     Dosage: (50 MG BID ORAL)
     Route: 048
  2. KEPPRA [Suspect]
     Indication: CONVULSION
     Dosage: (3000 MG ORAL)
     Route: 048
  3. TRILEPTAL [Concomitant]

REACTIONS (2)
  - DIPLOPIA [None]
  - SUICIDAL IDEATION [None]
